FAERS Safety Report 25027200 (Version 1)
Quarter: 2025Q1

REPORT INFORMATION
  Report Type: Spontaneous
  Country: US (occurrence: US)
  Receive Date: 20250301
  Receipt Date: 20250301
  Transmission Date: 20250409
  Serious: No
  Sender: SANOFI AVENTIS
  Company Number: US-SA-2025SA058155

PATIENT
  Age: 70 Year
  Sex: Female
  Weight: 86.36 kg

DRUGS (1)
  1. DUPIXENT [Suspect]
     Active Substance: DUPILUMAB
     Indication: Dermatitis atopic
     Route: 058
     Dates: start: 20250213, end: 20250213

REACTIONS (3)
  - Mouth swelling [Unknown]
  - Condition aggravated [Unknown]
  - Oral pain [Unknown]

NARRATIVE: CASE EVENT DATE: 20250217
